FAERS Safety Report 12175431 (Version 2)
Quarter: 2016Q1

REPORT INFORMATION
  Report Type: Spontaneous
  Country: DK (occurrence: GB)
  Receive Date: 20160314
  Receipt Date: 20160316
  Transmission Date: 20160526
  Serious: Yes (Other)
  Sender: FDA-Public Use
  Company Number: GB-FRI-1000083125

PATIENT
  Age: 24 Year
  Sex: Female
  Weight: 63.5 kg

DRUGS (1)
  1. ESCITALOPRAM [Suspect]
     Active Substance: ESCITALOPRAM OXALATE
     Indication: DEPRESSION
     Dosage: 15 MG DAILY
     Route: 048
     Dates: start: 20150301, end: 20150501

REACTIONS (1)
  - Alopecia areata [Recovered/Resolved]

NARRATIVE: CASE EVENT DATE: 20150401
